FAERS Safety Report 6993129-5 (Version None)
Quarter: 2010Q3

REPORT INFORMATION
  Report Type: 
  Country: None (occurrence: None)
  Receive Date: 20100917
  Receipt Date: 20100216
  Transmission Date: 20110219
  Serious: No
  Sender: FDA-Public Use
  Company Number: US-ASTRAZENECA-2010SE06875

PATIENT
  Age: 42 Year
  Sex: Male
  Weight: 124.7 kg

DRUGS (1)
  1. SEROQUEL XR [Suspect]
     Route: 048
     Dates: start: 20091001

REACTIONS (2)
  - COUGH [None]
  - OROPHARYNGEAL PAIN [None]
